FAERS Safety Report 15249703 (Version 11)
Quarter: 2020Q3

REPORT INFORMATION
  Report Type: Spontaneous
  Country: FR (occurrence: FR)
  Receive Date: 20180807
  Receipt Date: 20190912
  Transmission Date: 20201105
  Serious: Yes (Other)
  Sender: FDA-Public Use
  Company Number: FR-SA-2018SA106385

PATIENT
  Sex: Female
  Weight: 77 kg

DRUGS (41)
  1. LARGACTIL [Suspect]
     Active Substance: CHLORPROMAZINE
     Dosage: 25 MG, QD
     Route: 065
     Dates: start: 20170720
  2. GABAPENTIN. [Suspect]
     Active Substance: GABAPENTIN
     Dosage: 80 MG, QD
     Route: 048
     Dates: start: 20160930
  3. POTASSIUM CHLORIDE. [Suspect]
     Active Substance: POTASSIUM CHLORIDE
     Dosage: 1200 UNK
     Route: 065
     Dates: start: 20170804
  4. FERROUS SULFATE. [Suspect]
     Active Substance: FERROUS SULFATE
     Indication: NORMOCHROMIC NORMOCYTIC ANAEMIA
     Dosage: 1 DF, QD
     Route: 065
     Dates: start: 20170313
  5. NICARDIPINE [Suspect]
     Active Substance: NICARDIPINE
     Indication: HYPERTENSION
     Dosage: 1 DF, UNK
     Route: 065
     Dates: start: 20170313, end: 20180405
  6. NICARDIPINE [Suspect]
     Active Substance: NICARDIPINE
     Indication: HYPERTENSION
     Dosage: 50 MG, QD
     Route: 065
     Dates: start: 20170405
  7. INSULIN [Suspect]
     Active Substance: INSULIN NOS
     Indication: TYPE 2 DIABETES MELLITUS
     Dosage: UNK UNK,UNK
     Route: 065
     Dates: start: 20161230, end: 20170224
  8. RAMIPRIL. [Suspect]
     Active Substance: RAMIPRIL
     Indication: HYPERTENSION
     Dosage: 2.5 MG, QD
     Route: 048
     Dates: start: 20160930, end: 20170224
  9. RAMIPRIL. [Suspect]
     Active Substance: RAMIPRIL
     Dosage: 2.5 UNK
     Route: 048
     Dates: start: 20170224
  10. MACROGOL [Suspect]
     Active Substance: POLYETHYLENE GLYCOLS
     Indication: NORMOCHROMIC NORMOCYTIC ANAEMIA
     Dosage: UNK
  11. NICOTINE. [Suspect]
     Active Substance: NICOTINE
     Indication: EX-TOBACCO USER
     Dosage: 7 MG, QD
     Route: 065
     Dates: start: 20170224, end: 20170516
  12. LARGACTIL [Suspect]
     Active Substance: CHLORPROMAZINE
     Indication: BIPOLAR I DISORDER
     Dosage: 25 MG, QD
     Route: 065
     Dates: start: 20170720
  13. AMOXICILLIN TRIHYDRATE [Suspect]
     Active Substance: AMOXICILLIN
     Indication: PRODUCT USED FOR UNKNOWN INDICATION
     Dosage: 3 G, QD
     Route: 048
     Dates: start: 20170804, end: 20170811
  14. FOLINIC ACID [Suspect]
     Active Substance: LEUCOVORIN
     Indication: NORMOCHROMIC NORMOCYTIC ANAEMIA
     Dosage: 5 MG, QD
     Route: 065
     Dates: start: 20170313
  15. METFORMIN HYDROCHLORIDE. [Suspect]
     Active Substance: METFORMIN HYDROCHLORIDE
     Indication: TYPE 2 DIABETES MELLITUS
     Dosage: 1700 MG, QD
     Route: 048
     Dates: start: 20160930, end: 20170224
  16. METFORMIN HYDROCHLORIDE. [Suspect]
     Active Substance: METFORMIN HYDROCHLORIDE
     Dosage: 850 MG, QD
     Route: 048
     Dates: start: 20170224
  17. POTASSIUM CHLORIDE. [Suspect]
     Active Substance: POTASSIUM CHLORIDE
     Indication: HYPOKALAEMIA
     Dosage: 1200 MG, QD
     Route: 065
     Dates: start: 20170804
  18. LARGACTIL [Suspect]
     Active Substance: CHLORPROMAZINE
     Dosage: 0.5 DF, UNK
     Route: 065
  19. FUROSEMIDE. [Suspect]
     Active Substance: FUROSEMIDE
     Indication: HYPERTENSION
     Dosage: 40 MG, UNK
     Route: 065
  20. FUROSEMIDE. [Suspect]
     Active Substance: FUROSEMIDE
     Dosage: 50 MG, UNK
     Route: 065
  21. METHYLDOPA. [Suspect]
     Active Substance: METHYLDOPA
     Indication: HYPERTENSION
     Dosage: 15000 MG, QD
     Route: 048
     Dates: start: 20170720
  22. ARIPIPRAZOLE. [Suspect]
     Active Substance: ARIPIPRAZOLE
     Indication: BIPOLAR I DISORDER
     Dosage: 10 MG, QD
     Route: 065
     Dates: start: 20160930, end: 20170224
  23. AMITRIPTYLINE HYDROCHLORIDE. [Suspect]
     Active Substance: AMITRIPTYLINE HYDROCHLORIDE
     Indication: DIABETIC NEUROPATHY
     Dosage: 2 DF, QD
     Route: 065
     Dates: start: 20160930
  24. NICARDIPINE [Suspect]
     Active Substance: NICARDIPINE
     Dosage: 50 MG, UNK
     Route: 065
     Dates: start: 20170313, end: 20170405
  25. LEVEMIR [Suspect]
     Active Substance: INSULIN DETEMIR
     Indication: TYPE 2 DIABETES MELLITUS
     Dosage: 10 IU, QD
     Route: 065
     Dates: start: 20160930, end: 20170224
  26. LANTUS [Suspect]
     Active Substance: INSULIN GLARGINE
     Indication: TYPE 2 DIABETES MELLITUS
     Dosage: 20 MG, QD
     Route: 048
     Dates: start: 20170224
  27. MACROGOL [Suspect]
     Active Substance: POLYETHYLENE GLYCOLS
     Indication: CONSTIPATION
     Dosage: 1 DF, QD
     Route: 065
     Dates: start: 20160930, end: 20170405
  28. FOLIC ACID. [Suspect]
     Active Substance: FOLIC ACID
     Indication: NORMOCHROMIC NORMOCYTIC ANAEMIA
     Dosage: 5 MG, QD
     Route: 065
     Dates: start: 20170313
  29. LABETALOL HCL [Suspect]
     Active Substance: LABETALOL HYDROCHLORIDE
     Indication: HYPERTENSION
     Dosage: 80 MG, QD
     Route: 065
     Dates: start: 20170516
  30. GABAPENTIN. [Suspect]
     Active Substance: GABAPENTIN
     Dosage: 800 MG, QD
     Route: 048
     Dates: start: 20160930
  31. POTASSIUM CHLORIDE. [Suspect]
     Active Substance: POTASSIUM CHLORIDE
     Indication: HYPOKALAEMIA
     Dosage: 3600 MG, QD
     Route: 065
  32. NICARDIPINE [Suspect]
     Active Substance: NICARDIPINE
     Dosage: 100 MG, QD
     Route: 065
     Dates: start: 20180405
  33. NICARDIPINE [Suspect]
     Active Substance: NICARDIPINE
     Dosage: UNK
     Route: 065
  34. TRAMADOL HYDROCHLORIDE. [Suspect]
     Active Substance: TRAMADOL HYDROCHLORIDE
     Indication: DIABETIC NEUROPATHY
     Dosage: 50 MG, QD
     Route: 065
     Dates: start: 20160930, end: 20170306
  35. AMITRIPTYLINE HYDROCHLORIDE. [Suspect]
     Active Substance: AMITRIPTYLINE HYDROCHLORIDE
     Indication: PRODUCT USED FOR UNKNOWN INDICATION
  36. FERROUS SULFATE. [Suspect]
     Active Substance: FERROUS SULFATE
     Indication: NORMOCHROMIC NORMOCYTIC ANAEMIA
     Dosage: 1 DF, QD
     Route: 065
     Dates: start: 20170313
  37. FOLINIC ACID [Suspect]
     Active Substance: LEUCOVORIN
     Indication: NORMOCHROMIC NORMOCYTIC ANAEMIA
     Dosage: 5 MG, QD
     Route: 065
     Dates: start: 20170224, end: 20170313
  38. INSULIN LISPRO [Suspect]
     Active Substance: INSULIN LISPRO
     Indication: TYPE 2 DIABETES MELLITUS
     Dosage: 21 UG/M2, QD
     Route: 065
     Dates: start: 20170224, end: 20170224
  39. GABAPENTIN. [Suspect]
     Active Substance: GABAPENTIN
     Indication: DIABETIC NEUROPATHY
     Dosage: 400 MG, QD
     Route: 048
     Dates: start: 20160930
  40. GLICLAZIDE [Suspect]
     Active Substance: GLICLAZIDE
     Indication: TYPE 2 DIABETES MELLITUS
     Dosage: 120 MG, QD
     Route: 064
     Dates: start: 20160930, end: 20170224
  41. NICARDIPINE [Suspect]
     Active Substance: NICARDIPINE
     Dosage: UNK
     Route: 065

REACTIONS (5)
  - Foetal exposure during pregnancy [Unknown]
  - Pregnancy [Unknown]
  - Maternal exposure during pregnancy [Unknown]
  - Premature delivery [Unknown]
  - Exposure during pregnancy [Unknown]

NARRATIVE: CASE EVENT DATE: 20170804
